FAERS Safety Report 6933031-8 (Version None)
Quarter: 2010Q3

REPORT INFORMATION
  Report Type: 
  Country: None (occurrence: None)
  Receive Date: 20100818
  Receipt Date: 20100818
  Transmission Date: 20110219
  Serious: Yes (Hospitalization)
  Sender: FDA-Public Use
  Company Number: None

PATIENT
  Age: 73 Year
  Sex: Male

DRUGS (1)
  1. PAZOPANIB [Suspect]
     Indication: NEOPLASM MALIGNANT
     Dosage: 800 MG EVERY DAY PO
     Route: 048
     Dates: start: 20100312, end: 20100730

REACTIONS (3)
  - HAEMOPTYSIS [None]
  - PULMONARY EMBOLISM [None]
  - WHEEZING [None]
